FAERS Safety Report 9258899 (Version 1)
Quarter: 2013Q2

REPORT INFORMATION
  Report Type: Spontaneous
  Country: US (occurrence: US)
  Receive Date: 20130426
  Receipt Date: 20130426
  Transmission Date: 20140414
  Serious: No
  Sender: FDA-Public Use
  Company Number: US-009507513-1304USA014554

PATIENT
  Age: 46 Year
  Sex: Female

DRUGS (10)
  1. JANUVIA [Suspect]
     Indication: DIABETES MELLITUS
     Dosage: 100 MG, QD
     Route: 048
     Dates: start: 20130106
  2. NORVASC [Concomitant]
  3. CLONIDINE [Concomitant]
  4. DIOVAN [Concomitant]
  5. PREDNISONE [Concomitant]
  6. ZOCOR [Concomitant]
  7. METFORMIN [Concomitant]
  8. NEXIUM [Concomitant]
  9. XANAX [Concomitant]
  10. LANTUS [Concomitant]

REACTIONS (3)
  - Rash pruritic [Not Recovered/Not Resolved]
  - Dermatitis bullous [Not Recovered/Not Resolved]
  - Rash [Not Recovered/Not Resolved]
